FAERS Safety Report 6059969-4 (Version None)
Quarter: 2009Q1

REPORT INFORMATION
  Report Type: 
  Country: None (occurrence: None)
  Receive Date: 20090130
  Receipt Date: 20090129
  Transmission Date: 20090719
  Serious: Yes (Hospitalization)
  Sender: FDA-Public Use
  Company Number: JP-B.I. PHARMACEUTICALS,INC./RIDGEFIELD-2008-BP-16821NB

PATIENT
  Sex: Female
  Weight: 55.6 kg

DRUGS (7)
  1. MICARDIS [Suspect]
     Indication: HYPERTENSION
     Dosage: 40MG
     Route: 048
     Dates: start: 20060922, end: 20080430
  2. MEVALOTIN [Concomitant]
     Dosage: 10MG
     Route: 048
     Dates: start: 20010824
  3. WARFARIN SODIUM [Concomitant]
     Dosage: 2MG
     Route: 048
     Dates: start: 19980207
  4. SHAKUYAKU-KANZO-TO [Concomitant]
     Route: 048
     Dates: start: 20051025
  5. PLATIBIT [Concomitant]
     Dosage: 1MCG
     Route: 048
     Dates: start: 19960301
  6. ARICEPT [Concomitant]
     Dosage: 5MG
     Route: 048
     Dates: start: 20061020
  7. CORENSOUL [Concomitant]
     Dosage: 200MG
     Route: 048
     Dates: start: 20061208

REACTIONS (1)
  - FEMORAL NECK FRACTURE [None]
